FAERS Safety Report 9848958 (Version 2)
Quarter: 2014Q1

REPORT INFORMATION
  Report Type: Report from Study
  Country: US (occurrence: US)
  Receive Date: 20140128
  Receipt Date: 20140204
  Transmission Date: 20141002
  Serious: Yes (Other)
  Sender: FDA-Public Use
  Company Number: US-ASTELLAS-2014US000835

PATIENT
  Sex: Female

DRUGS (5)
  1. ERLOTINIB TABLET [Suspect]
     Indication: LUNG NEOPLASM MALIGNANT
     Dosage: 150 MG, UID/QD
     Route: 048
     Dates: start: 20140116, end: 20140117
  2. LEVONOX [Concomitant]
     Indication: THROMBOSIS
     Dosage: 80 MG, UNKNOWN/D
     Route: 042
     Dates: start: 201311
  3. OXYCODON [Concomitant]
     Indication: PAIN
     Dosage: 10MG / 325 MG
     Route: 048
  4. BACLOFEN [Concomitant]
     Indication: PAIN
     Dosage: 20 MG, BID
     Route: 048
  5. DIOVAN [Concomitant]
     Indication: BLOOD PRESSURE
     Dosage: 160 MG, UID/QD
     Route: 048
     Dates: start: 2010

REACTIONS (4)
  - Swollen tongue [Unknown]
  - Hypoaesthesia oral [Unknown]
  - Wheezing [Unknown]
  - Pruritus generalised [Unknown]
